FAERS Safety Report 15925565 (Version 5)
Quarter: 2020Q1

REPORT INFORMATION
  Report Type: Spontaneous
  Country: US (occurrence: US)
  Receive Date: 20190206
  Receipt Date: 20200228
  Transmission Date: 20200409
  Serious: No
  Sender: FDA-Public Use
  Company Number: US-PFIZER INC-2019043425

PATIENT
  Age: 76 Year
  Sex: Female
  Weight: 73 kg

DRUGS (6)
  1. IBRANCE [Suspect]
     Active Substance: PALBOCICLIB
     Indication: METASTASES TO BONE
  2. IBRANCE [Suspect]
     Active Substance: PALBOCICLIB
     Indication: NEOPLASM MALIGNANT
     Dosage: 125 MG, CYCLIC (ONCE DAILY FOR 21 DAYS ON AND 7 DAYS OFF)
     Route: 048
     Dates: start: 2018
  3. IBRANCE [Suspect]
     Active Substance: PALBOCICLIB
     Indication: METASTASES TO LIVER
  4. IBRANCE [Suspect]
     Active Substance: PALBOCICLIB
     Indication: BREAST CANCER
     Dosage: 100 MG, CYCLIC
  5. IBRANCE [Suspect]
     Active Substance: PALBOCICLIB
     Indication: BILE DUCT CANCER
  6. ANASTROZOLE. [Suspect]
     Active Substance: ANASTROZOLE
     Dosage: UNK

REACTIONS (5)
  - Limb injury [Unknown]
  - Nail disorder [Unknown]
  - Product dispensing error [Unknown]
  - Noninfective gingivitis [Recovering/Resolving]
  - Glossodynia [Recovering/Resolving]

NARRATIVE: CASE EVENT DATE: 201801
